FAERS Safety Report 4831654-3 (Version None)
Quarter: 2005Q4

REPORT INFORMATION
  Report Type: 
  Country: None (occurrence: None)
  Receive Date: 20051116
  Receipt Date: 20051104
  Transmission Date: 20060501
  Serious: Yes (Hospitalization)
  Sender: FDA-Public Use
  Company Number: 200511IM000707

PATIENT
  Age: 55 Year
  Sex: Female

DRUGS (1)
  1. INFERGEN [Suspect]
     Indication: HEPATITIS C
     Dosage: 15 UG, QD, SUBCUTANEOUS
     Route: 058
     Dates: start: 20050131, end: 20051102

REACTIONS (4)
  - DYSPNOEA [None]
  - MEMORY IMPAIRMENT [None]
  - PERICARDIAL EFFUSION [None]
  - TEARFULNESS [None]
